FAERS Safety Report 14566648 (Version 1)
Quarter: 2018Q1

REPORT INFORMATION
  Report Type: Spontaneous
  Country: BR (occurrence: BR)
  Receive Date: 20180223
  Receipt Date: 20180223
  Transmission Date: 20180509
  Serious: Yes (Death)
  Sender: FDA-Public Use
  Company Number: BR-ABBVIE-18P-020-2267461-00

PATIENT
  Age: 31 Year
  Sex: Female
  Weight: 90 kg

DRUGS (2)
  1. DEPAKOTE ER [Suspect]
     Active Substance: DIVALPROEX SODIUM
     Indication: EPILEPSY
     Dosage: MORNING/ NIGHT; START DATE: ABOUT 4 OR 5 FEBRUARY 2013
     Route: 048
     Dates: start: 201302
  2. RECONTER [Concomitant]
     Active Substance: ESCITALOPRAM OXALATE
     Indication: ANXIETY
     Dosage: MORNING
     Route: 048
     Dates: start: 20130201, end: 20161217

REACTIONS (4)
  - Seizure [Fatal]
  - Product use issue [Unknown]
  - Respiratory failure [Fatal]
  - Asphyxia [Fatal]

NARRATIVE: CASE EVENT DATE: 20161217
